FAERS Safety Report 6818780-4 (Version None)
Quarter: 2010Q2

REPORT INFORMATION
  Report Type: 
  Country: None (occurrence: None)
  Receive Date: 20100630
  Receipt Date: 20100618
  Transmission Date: 20101027
  Serious: Yes (Other)
  Sender: FDA-Public Use
  Company Number: B0662694A

PATIENT
  Age: 37 Year
  Sex: Female

DRUGS (2)
  1. AMOXICILLIN TRIHYDRATE [Suspect]
     Dosage: 500 MG/ SINGLE DOSE/ ORAL
     Route: 048
  2. EPINEPHRINE [Suspect]
     Indication: ANAPHYLACTIC REACTION
     Dosage: INTRAVENOUS
     Route: 042

REACTIONS (7)
  - ACUTE CORONARY SYNDROME [None]
  - ANAPHYLACTIC SHOCK [None]
  - ELECTROCARDIOGRAM ST SEGMENT DEPRESSION [None]
  - FALL [None]
  - KOUNIS SYNDROME [None]
  - MYOCARDIAL ISCHAEMIA [None]
  - OVERDOSE [None]
